FAERS Safety Report 9108400 (Version 2)
Quarter: 2013Q1

REPORT INFORMATION
  Report Type: Report from Study
  Country: CA (occurrence: CA)
  Receive Date: 20130222
  Receipt Date: 20130225
  Transmission Date: 20140127
  Serious: Yes (Death)
  Sender: FDA-Public Use
  Company Number: PHHO2013CA002876

PATIENT
  Age: 54 Year
  Sex: Male

DRUGS (5)
  1. EVEROLIMUS [Suspect]
     Indication: HEART TRANSPLANT
     Dosage: 0.75 MG, BID
     Route: 048
     Dates: start: 20041109
  2. CYCLOSPORINE [Concomitant]
  3. IRBESARTAN [Concomitant]
  4. ROSUVASTATIN [Concomitant]
  5. WARFARIN [Concomitant]

REACTIONS (1)
  - Death [Fatal]
